FAERS Safety Report 10440060 (Version 2)
Quarter: 2014Q3

REPORT INFORMATION
  Report Type: Spontaneous
  Country: US (occurrence: US)
  Receive Date: 20140908
  Receipt Date: 20140908
  Transmission Date: 20150326
  Serious: No
  Sender: FDA-Public Use
  Company Number: US-BRISTOL-MYERS SQUIBB COMPANY-20683447

PATIENT
  Age: 46 Year
  Sex: Female
  Weight: 65.76 kg

DRUGS (4)
  1. ABILIFY [Suspect]
     Active Substance: ARIPIPRAZOLE
     Indication: MAJOR DEPRESSION
     Dosage: DOSE: 2.5MG QHS?INTRPTD ON 01JAN14?RESTRTD ON 23APR14
     Route: 048
     Dates: start: 20130514
  2. DIAZEPAM. [Concomitant]
     Active Substance: DIAZEPAM
  3. PRISTIQ EXTENDED RELEASE [Concomitant]
     Active Substance: DESVENLAFAXINE SUCCINATE
  4. DESVENLAFAXINE SUCCINATE [Concomitant]
     Active Substance: DESVENLAFAXINE SUCCINATE
     Dosage: DOSE: 50MG QAM

REACTIONS (2)
  - Drug dose omission [Unknown]
  - Wrong technique in drug usage process [Unknown]
